FAERS Safety Report 5129605-X (Version None)
Quarter: 2006Q4

REPORT INFORMATION
  Report Type: 
  Country: None (occurrence: None)
  Receive Date: 20061012
  Receipt Date: 20060926
  Transmission Date: 20070319
  Serious: Yes (Other)
  Sender: FDA-Public Use
  Company Number: DSA_28727_2006

PATIENT
  Age: 74 Year
  Sex: Female
  Weight: 62.5964 kg

DRUGS (4)
  1. CARDIZEM CD [Suspect]
     Indication: HYPERTENSION
     Dosage: 240 MG QAM PO
     Route: 048
     Dates: start: 20060721
  2. CARDIZEM CD [Suspect]
     Indication: HYPERTENSION
     Dosage: 240 MG QAM PO; A FEW YEARS
     Route: 048
     Dates: end: 20060720
  3. LIPITOR [Concomitant]
  4. ASPIRIN [Concomitant]

REACTIONS (3)
  - ANXIETY [None]
  - BLOOD PRESSURE INADEQUATELY CONTROLLED [None]
  - BLOOD PRESSURE INCREASED [None]
